FAERS Safety Report 23622721 (Version 1)
Quarter: 2024Q1

REPORT INFORMATION
  Report Type: Spontaneous
  Country: CA (occurrence: None)
  Receive Date: 20240312
  Receipt Date: 20240312
  Transmission Date: 20240410
  Serious: Yes (Other)
  Sender: FDA-Public Use
  Company Number: 2024A054182

PATIENT
  Sex: Male

DRUGS (1)
  1. SYMBICORT [Suspect]
     Active Substance: BUDESONIDE\FORMOTEROL FUMARATE DIHYDRATE
     Dosage: 200 MICROGRAM, UNKNOWN UNKNOWN
     Route: 055

REACTIONS (6)
  - Amnesia [Unknown]
  - Fall [Unknown]
  - Loss of consciousness [Unknown]
  - Seizure [Unknown]
  - Tremor [Unknown]
  - Product physical issue [Unknown]
